FAERS Safety Report 7499723-X (Version None)
Quarter: 2011Q2

REPORT INFORMATION
  Report Type: 
  Country: None (occurrence: None)
  Receive Date: 20110524
  Receipt Date: 20110516
  Transmission Date: 20111010
  Serious: Yes (Other)
  Sender: FDA-Public Use
  Company Number: ZA-ROCHE-777732

PATIENT
  Age: 6 Month
  Sex: Female

DRUGS (1)
  1. ROCEPHIN [Suspect]
     Route: 065

REACTIONS (6)
  - DEAFNESS UNILATERAL [None]
  - HYPOXIA [None]
  - VISUAL ACUITY REDUCED [None]
  - CARDIO-RESPIRATORY ARREST [None]
  - REGRESSIVE BEHAVIOUR [None]
  - TRAUMATIC BRAIN INJURY [None]
